FAERS Safety Report 5421175-1 (Version None)
Quarter: 2007Q3

REPORT INFORMATION
  Report Type: 
  Country: None (occurrence: None)
  Receive Date: 20070719
  Receipt Date: 20070405
  Transmission Date: 20080115
  Serious: Yes (Other)
  Sender: FDA-Public Use
  Company Number: HQWYE864506APR07

PATIENT
  Age: 59 Year
  Sex: Male
  Weight: 96.7 kg

DRUGS (5)
  1. ADVIL PM [Suspect]
     Indication: INSOMNIA
     Dosage: 2 CAPLETS DAILY, ORAL
     Route: 048
     Dates: start: 20061201, end: 20070401
  2. ADVIL PM [Suspect]
     Indication: PAIN
     Dosage: 2 CAPLETS DAILY, ORAL
     Route: 048
     Dates: start: 20061201, end: 20070401
  3. QUINAPRIL HCL [Concomitant]
  4. HYDROCHLOROTHIAZIDE [Concomitant]
  5. LORTAB [Concomitant]

REACTIONS (2)
  - ABNORMAL SLEEP-RELATED EVENT [None]
  - SLEEP TALKING [None]
